FAERS Safety Report 8848075 (Version 1)
Quarter: 2012Q4

REPORT INFORMATION
  Report Type: 
  Country: US (occurrence: US)
  Receive Date: 20121018
  Receipt Date: 20121018
  Transmission Date: 20130627
  Serious: No
  Sender: FDA-Public Use
  Company Number: US-B.I. PHARMACEUTICALS,INC./RIDGEFIELD-2012-BP-23910BP

PATIENT
  Age: 69 Year
  Sex: Male

DRUGS (12)
  1. SPIRIVA [Suspect]
     Indication: CHRONIC OBSTRUCTIVE PULMONARY DISEASE
     Dosage: 18 mcg
     Route: 055
     Dates: start: 20120830
  2. SPIRIVA [Suspect]
     Route: 048
     Dates: start: 20121001, end: 20121001
  3. ATENOLOL [Concomitant]
     Indication: HYPERTENSION
     Dosage: 50 mg
     Route: 048
  4. OLANZAPINE [Concomitant]
     Indication: MOOD ALTERED
     Dosage: 7.5 mg
     Route: 048
  5. TAMSULOSIN [Concomitant]
     Indication: BENIGN PROSTATIC HYPERPLASIA
     Dosage: 0.4 mg
     Route: 048
  6. OMEPRAZOLE [Concomitant]
     Indication: GASTROINTESTINAL DISORDER
     Dosage: 20 mg
     Route: 048
  7. CYANOCOBALAMIN [Concomitant]
     Dosage: 1000 mcg
     Route: 048
  8. SALSALATE [Concomitant]
     Indication: PAIN
     Dosage: 1500 mg
     Route: 048
  9. SALSALATE [Concomitant]
     Indication: INFLAMMATION
  10. VENLAFAXINE HYDROCHLORIDE [Concomitant]
     Indication: MOOD ALTERED
     Dosage: 225 mg
     Route: 048
  11. VENLAFAXINE HYDROCHLORIDE [Concomitant]
     Indication: NEURALGIA
  12. ALBUTEROL [Concomitant]
     Route: 055

REACTIONS (1)
  - Incorrect route of drug administration [Recovered/Resolved]
